FAERS Safety Report 5012703-9 (Version None)
Quarter: 2006Q2

REPORT INFORMATION
  Report Type: 
  Country: None (occurrence: None)
  Receive Date: 20060524
  Receipt Date: 20060515
  Transmission Date: 20061013
  Serious: Yes (Other)
  Sender: FDA-Public Use
  Company Number: 2006056102

PATIENT
  Sex: Female

DRUGS (1)
  1. AROMASIN [Suspect]
     Indication: BREAST CANCER
     Dates: start: 20060201

REACTIONS (6)
  - DERMATITIS [None]
  - ECZEMA [None]
  - ERYSIPELAS [None]
  - OEDEMA PERIPHERAL [None]
  - PURPURA [None]
  - VENOUS INSUFFICIENCY [None]
